FAERS Safety Report 4930687-6 (Version None)
Quarter: 2006Q1

REPORT INFORMATION
  Report Type: 
  Country: None (occurrence: None)
  Receive Date: 20060227
  Receipt Date: 20060213
  Transmission Date: 20060701
  Serious: Yes (Other)
  Sender: FDA-Public Use
  Company Number: 2006024989

PATIENT
  Age: 45 Year
  Sex: Female

DRUGS (4)
  1. LYRICA [Suspect]
     Indication: ILL-DEFINED DISORDER
  2. WELLBUTRIN [Concomitant]
  3. PREVACID [Concomitant]
  4. BENADRYL [Concomitant]

REACTIONS (4)
  - HYPOAESTHESIA [None]
  - LIVEDO RETICULARIS [None]
  - MYOCARDIAL INFARCTION [None]
  - SKIN DISCOLOURATION [None]
